FAERS Safety Report 7101343-3 (Version None)
Quarter: 2010Q4

REPORT INFORMATION
  Report Type: 
  Country: None (occurrence: None)
  Receive Date: 20101108
  Receipt Date: 20101031
  Transmission Date: 20110411
  Serious: Yes (Other)
  Sender: FDA-Public Use
  Company Number: 021393

PATIENT
  Age: 12 Year
  Sex: Female
  Weight: 55 kg

DRUGS (1)
  1. XUSAL [Suspect]
     Dosage: 6 TABLETS; TOTAL DOSE: 30 MG; INTAKE ASSURED ORAL
     Route: 048

REACTIONS (2)
  - SELF-MEDICATION [None]
  - SUICIDE ATTEMPT [None]
